FAERS Safety Report 8960588 (Version 1)
Quarter: 2012Q4

REPORT INFORMATION
  Report Type: Spontaneous
  Country: US (occurrence: None)
  Receive Date: 20121130
  Receipt Date: 20121130
  Transmission Date: 20130627
  Serious: Yes (Life-Threatening, Other)
  Sender: FDA-Public Use
  Company Number: 1501956

PATIENT
  Age: 47 Year
  Sex: Female
  Weight: 69.09 kg

DRUGS (2)
  1. DIAZEPAM [Suspect]
     Indication: PREOPERATIVE CARE
     Route: 042
     Dates: start: 20120731, end: 20120731
  2. DIAZEPAM [Suspect]
     Indication: SEDATION
     Route: 042
     Dates: start: 20120731, end: 20120731

REACTIONS (6)
  - Myocardial infarction [None]
  - Unevaluable event [None]
  - Dyspnoea [None]
  - Blood pressure decreased [None]
  - Cough [None]
  - Vomiting [None]
